FAERS Safety Report 19797876 (Version 1)
Quarter: 2021Q3

REPORT INFORMATION
  Report Type: Spontaneous
  Country: US (occurrence: US)
  Receive Date: 20210906
  Receipt Date: 20210906
  Transmission Date: 20211014
  Serious: Yes (Life-Threatening)
  Sender: FDA-Public Use
  Company Number: None

PATIENT
  Age: 30 Year
  Sex: Female

DRUGS (4)
  1. VITAMIN D3 [Concomitant]
     Active Substance: CHOLECALCIFEROL
  2. DESMOPRESSIN .1 MG TAB NOR GENERIC FOR DDAVP 0.1 MG [Suspect]
     Active Substance: DESMOPRESSIN
     Dosage: ?          QUANTITY:3 TABLET(S);?
     Route: 048
  3. LEVETIRACETAM. [Concomitant]
     Active Substance: LEVETIRACETAM
  4. SERTRALINE [Concomitant]
     Active Substance: SERTRALINE HYDROCHLORIDE

REACTIONS (2)
  - Product quality issue [None]
  - Therapeutic product effect decreased [None]

NARRATIVE: CASE EVENT DATE: 20210819
